FAERS Safety Report 8054250-6 (Version None)
Quarter: 2012Q1

REPORT INFORMATION
  Report Type: 
  Country: None (occurrence: None)
  Receive Date: 20120118
  Receipt Date: 20120109
  Transmission Date: 20120608
  Serious: Yes (Other)
  Sender: FDA-Public Use
  Company Number: PHHY2011NZ57307

PATIENT
  Sex: Female

DRUGS (5)
  1. LEVOTHYROXINE SODIUM [Concomitant]
     Dosage: 50 UG,
     Route: 048
  2. ARIPIPRAZOLE [Concomitant]
     Indication: SCHIZOPHRENIA
     Dosage: 15 MG,
     Route: 048
  3. CLOZARIL [Suspect]
     Indication: SCHIZOPHRENIA
     Dosage: 300 MG, DAILY
     Route: 048
     Dates: start: 20100608
  4. FLUOXETINE [Concomitant]
     Dosage: 20 MG,
     Route: 048
  5. METFORMIN HCL [Concomitant]

REACTIONS (4)
  - MATERNAL EXPOSURE DURING PREGNANCY [None]
  - POLYHYDRAMNIOS [None]
  - GESTATIONAL DIABETES [None]
  - WEIGHT INCREASED [None]
